FAERS Safety Report 5570488-1 (Version None)
Quarter: 2007Q4

REPORT INFORMATION
  Report Type: 
  Country: None (occurrence: None)
  Receive Date: 20071221
  Receipt Date: 20071026
  Transmission Date: 20080405
  Serious: No
  Sender: FDA-Public Use
  Company Number: US-BRISTOL-MYERS SQUIBB COMPANY-13958715

PATIENT
  Age: 64 Year
  Sex: Male
  Weight: 86 kg

DRUGS (5)
  1. ORENCIA [Suspect]
     Indication: RHEUMATOID ARTHRITIS
     Dosage: LAST INFUSION 10OCT2007
     Route: 042
     Dates: start: 20070101
  2. ADVAIR DISKUS 100/50 [Concomitant]
  3. ACIPHEX [Concomitant]
  4. ZYRTEC [Concomitant]
  5. XOLAIR [Concomitant]

REACTIONS (4)
  - HEADACHE [None]
  - HYPOAESTHESIA [None]
  - NAUSEA [None]
  - PAIN IN EXTREMITY [None]
